FAERS Safety Report 15302226 (Version 1)
Quarter: 2018Q3

REPORT INFORMATION
  Report Type: Spontaneous
  Country: US (occurrence: US)
  Receive Date: 20180821
  Receipt Date: 20180821
  Transmission Date: 20181010
  Serious: No
  Sender: FDA-Public Use
  Company Number: US-BAYER-2018-145276

PATIENT
  Age: 47 Year
  Sex: Female

DRUGS (1)
  1. FINACEA [Suspect]
     Active Substance: AZELAIC ACID
     Indication: ROSACEA
     Dosage: UNK
     Route: 061
     Dates: start: 20180727

REACTIONS (5)
  - Off label use [None]
  - Application site erythema [None]
  - Product use in unapproved indication [None]
  - Application site pain [Recovered/Resolved]
  - Application site burn [Recovered/Resolved]
